FAERS Safety Report 11160503 (Version 1)
Quarter: 2015Q2

REPORT INFORMATION
  Report Type: Spontaneous
  Country: US (occurrence: US)
  Receive Date: 20150604
  Receipt Date: 20150604
  Transmission Date: 20150821
  Serious: No
  Sender: FDA-Public Use
  Company Number: US-SA-2014SA060403

PATIENT
  Age: 53 Year
  Sex: Male

DRUGS (3)
  1. LANTUS [Suspect]
     Active Substance: INSULIN GLARGINE
     Indication: TYPE 2 DIABETES MELLITUS
     Dosage: START DATE: 7 YEARS AGO DOSE:34 UNIT(S)
     Route: 058
  2. LANTUS [Suspect]
     Active Substance: INSULIN GLARGINE
     Indication: TYPE 2 DIABETES MELLITUS
     Dosage: DOSE:34 UNIT(S)
     Route: 058
     Dates: start: 20140429
  3. VICTOZA [Concomitant]
     Active Substance: LIRAGLUTIDE

REACTIONS (2)
  - Blood glucose increased [Not Recovered/Not Resolved]
  - Drug ineffective [Not Recovered/Not Resolved]

NARRATIVE: CASE EVENT DATE: 201405
